FAERS Safety Report 8544757-7 (Version None)
Quarter: 2012Q3

REPORT INFORMATION
  Report Type: 
  Country: None (occurrence: None)
  Receive Date: 20120727
  Receipt Date: 20120717
  Transmission Date: 20120928
  Serious: Yes (Hospitalization)
  Sender: FDA-Public Use
  Company Number: BR-ROCHE-1089588

PATIENT
  Sex: Male
  Weight: 95 kg

DRUGS (9)
  1. HYDROCHLOROTHIAZIDE/LOSARTAN POTASSIUM [Suspect]
     Indication: HYPERTENSION
     Dosage: DRUG WAS REPORTED AS ZAART-H
  2. ALLOPURINOL [Concomitant]
     Indication: BLOOD URIC ACID INCREASED
  3. ZETIA [Concomitant]
     Indication: BLOOD CHOLESTEROL INCREASED
  4. ASPIRIN [Concomitant]
     Dosage: REPORTED AS ASPIRINA PREVENT
  5. CRESTOR [Concomitant]
     Indication: BLOOD CHOLESTEROL INCREASED
  6. RIVOTRIL [Suspect]
     Indication: FEELING OF RELAXATION
     Route: 048
  7. RIVOTRIL [Suspect]
     Indication: SLEEP DISORDER
  8. ZETIA [Concomitant]
     Indication: BLOOD TRIGLYCERIDES INCREASED
  9. CRESTOR [Concomitant]
     Indication: BLOOD TRIGLYCERIDES INCREASED

REACTIONS (3)
  - HEART INJURY [None]
  - BLOOD TESTOSTERONE DECREASED [None]
  - DRUG DEPENDENCE [None]
